FAERS Safety Report 8983836 (Version 1)
Quarter: 2012Q4

REPORT INFORMATION
  Report Type: Report from Study
  Country: DE (occurrence: DE)
  Receive Date: 20121224
  Receipt Date: 20121224
  Transmission Date: 20130627
  Serious: Yes (Other)
  Sender: FDA-Public Use
  Company Number: DE-ROCHE-1169207

PATIENT
  Age: 68 Year
  Sex: Female
  Weight: 77.5 kg

DRUGS (6)
  1. BEVACIZUMAB [Suspect]
     Indication: OVARIAN CANCER
     Dosage: Date of last dose prior to SAE:20/Nov/2012
     Route: 042
     Dates: start: 20120605
  2. CARBOPLATIN [Suspect]
     Indication: OVARIAN CANCER
     Dosage: Date of last dose prior to SAE: 20/Sep/2012
     Route: 042
     Dates: start: 20120515
  3. PACLITAXEL [Suspect]
     Indication: OVARIAN CANCER
     Dosage: Date of last dose prior to SAE:20/Sep/2012
     Route: 042
     Dates: start: 20120515
  4. METOPROLOL [Concomitant]
     Indication: HYPERTENSION
     Route: 048
  5. SPIRONOLACTON [Concomitant]
     Indication: HYPERTENSION
     Route: 048
  6. CANDESARTAN [Concomitant]
     Indication: HYPERTENSION
     Dosage: Daily Dose:16/125mg
     Route: 048

REACTIONS (1)
  - Humerus fracture [Not Recovered/Not Resolved]
